FAERS Safety Report 7288817-X (Version None)
Quarter: 2011Q1

REPORT INFORMATION
  Report Type: 
  Country: None (occurrence: None)
  Receive Date: 20110211
  Receipt Date: 20110201
  Transmission Date: 20110831
  Serious: Yes (Hospitalization)
  Sender: FDA-Public Use
  Company Number: IL-MERCK-1102ISR00007

PATIENT
  Age: 16 Year
  Sex: Female

DRUGS (5)
  1. METHYLPREDNISOLONE [Concomitant]
     Route: 065
  2. SIROLIMUS [Concomitant]
     Route: 065
  3. INFLIXIMAB [Concomitant]
     Route: 065
  4. CANCIDAS [Suspect]
     Route: 051
  5. ANTILYMPHOCYTE IMMUNOGLOBULIN [Concomitant]
     Route: 065

REACTIONS (1)
  - CELLULITIS [None]
